FAERS Safety Report 6842247-0 (Version None)
Quarter: 2010Q3

REPORT INFORMATION
  Report Type: 
  Country: None (occurrence: None)
  Receive Date: 20100714
  Receipt Date: 20070723
  Transmission Date: 20110219
  Serious: No
  Sender: FDA-Public Use
  Company Number: US-PFIZER INC-2007062653

PATIENT
  Sex: Male

DRUGS (7)
  1. CHANTIX [Suspect]
     Indication: SMOKING CESSATION THERAPY
     Route: 048
     Dates: start: 20070601
  2. AVANDAMET [Concomitant]
  3. GALENIC /BISOPROLOL/HYDROCHLOROTHIAZIDE/ [Concomitant]
  4. ZETIA [Concomitant]
  5. ALTACE [Concomitant]
  6. ACETYLSALICYLIC ACID [Concomitant]
  7. ANDROGEL [Concomitant]

REACTIONS (2)
  - ABNORMAL DREAMS [None]
  - INSOMNIA [None]
